FAERS Safety Report 4378304-0 (Version None)
Quarter: 2004Q2

REPORT INFORMATION
  Report Type: 
  Country: None (occurrence: None)
  Receive Date: 20040609
  Receipt Date: 20040528
  Transmission Date: 20050107
  Serious: Yes (Death, Hospitalization)
  Sender: FDA-Public Use
  Company Number: NSADSS2003004760

PATIENT
  Age: 81 Year
  Sex: Male
  Weight: 54.4316 kg

DRUGS (3)
  1. DURAGESIC [Suspect]
     Indication: PAIN
     Dosage: 100 UG/HR, 1 IN 48 HOUR, TRANSDERMAL
     Route: 062
     Dates: start: 20021102, end: 20030125
  2. LIDODERM TRANSDERMAL (LIDOCAINE) [Concomitant]
  3. SENAKOT (SENNA FRUIT) [Concomitant]

REACTIONS (1)
  - POST PROCEDURAL COMPLICATION [None]
